FAERS Safety Report 7512114-8 (Version None)
Quarter: 2011Q2

REPORT INFORMATION
  Report Type: 
  Country: None (occurrence: None)
  Receive Date: 20110519
  Receipt Date: 20110511
  Transmission Date: 20111010
  Serious: Yes (Hospitalization, Other)
  Sender: FDA-Public Use
  Company Number: 1000018954

PATIENT
  Age: 31 Year
  Sex: Female

DRUGS (2)
  1. DIANETTE (CYPROTERONE ACETATE, ETHINYLESTRADIOL)(CYPROTERONE ACETATE, [Concomitant]
  2. LEXAPRO [Suspect]
     Dosage: ORAL
     Route: 048

REACTIONS (1)
  - CYCLIC NEUTROPENIA [None]
